FAERS Safety Report 18671591 (Version 1)
Quarter: 2020Q4

REPORT INFORMATION
  Report Type: Spontaneous
  Country: US (occurrence: US)
  Receive Date: 20201228
  Receipt Date: 20201228
  Transmission Date: 20210114
  Serious: Yes (Other)
  Sender: FDA-Public Use
  Company Number: US-JNJFOC-20201233695

PATIENT
  Age: 67 Year
  Sex: Male

DRUGS (5)
  1. NITROGLYCERIN. [Concomitant]
     Active Substance: NITROGLYCERIN
     Indication: RAYNAUD^S PHENOMENON
  2. SILDENAFIL. [Concomitant]
     Active Substance: SILDENAFIL
     Indication: SKIN ULCER
  3. NIFEDIPINE. [Concomitant]
     Active Substance: NIFEDIPINE
     Indication: RAYNAUD^S PHENOMENON
  4. OXYGEN. [Concomitant]
     Active Substance: OXYGEN
  5. TRACLEER [Suspect]
     Active Substance: BOSENTAN
     Indication: SKIN ULCER
     Route: 065

REACTIONS (5)
  - Skin ulcer [Unknown]
  - Off label use [Unknown]
  - Peripheral ischaemia [Unknown]
  - Product use in unapproved indication [Unknown]
  - Pulmonary embolism [Unknown]
